FAERS Safety Report 18624666 (Version 6)
Quarter: 2022Q1

REPORT INFORMATION
  Report Type: Spontaneous
  Country: US (occurrence: US)
  Receive Date: 20201216
  Receipt Date: 20220314
  Transmission Date: 20220424
  Serious: No
  Sender: FDA-Public Use
  Company Number: US-PFIZER INC-2020496853

PATIENT
  Age: 59 Year
  Sex: Female

DRUGS (3)
  1. XELJANZ XR [Suspect]
     Active Substance: TOFACITINIB CITRATE
     Indication: Rheumatoid arthritis
     Dosage: 11 MG, 1X/DAY
     Route: 048
     Dates: start: 202011
  2. METHOTREXATE [Concomitant]
     Active Substance: METHOTREXATE
     Dosage: UNK
  3. PLAQUENIL [Concomitant]
     Active Substance: HYDROXYCHLOROQUINE SULFATE
     Dosage: UNK

REACTIONS (14)
  - COVID-19 [Unknown]
  - Fall [Unknown]
  - Contusion [Unknown]
  - Immune system disorder [Unknown]
  - Poor quality sleep [Unknown]
  - Fatigue [Unknown]
  - Pain in extremity [Unknown]
  - Paraesthesia [Unknown]
  - Intentional dose omission [Unknown]
  - Depressed mood [Unknown]
  - Malaise [Unknown]
  - Pain [Unknown]
  - Feeling cold [Unknown]
  - Dysphonia [Unknown]

NARRATIVE: CASE EVENT DATE: 20200101
